FAERS Safety Report 10590093 (Version 1)
Quarter: 2014Q4

REPORT INFORMATION
  Report Type: Spontaneous
  Country: US (occurrence: None)
  Receive Date: 20141117
  Receipt Date: 20141117
  Transmission Date: 20150529
  Serious: Yes (Life-Threatening, Other)
  Sender: FDA-Public Use
  Company Number: None

PATIENT
  Age: 44 Year
  Sex: Female
  Weight: 77.11 kg

DRUGS (3)
  1. LAMOTRIGINE. [Suspect]
     Active Substance: LAMOTRIGINE
     Indication: DEPRESSION
     Dosage: 2 PER DAY  TWICE DAILY TAKEN BY MOUTH
     Route: 048
  2. LAMOTRIGINE. [Suspect]
     Active Substance: LAMOTRIGINE
     Indication: POST-TRAUMATIC STRESS DISORDER
     Dosage: 2 PER DAY  TWICE DAILY TAKEN BY MOUTH
     Route: 048
  3. LAMOTRIGINE. [Suspect]
     Active Substance: LAMOTRIGINE
     Indication: DISSOCIATIVE DISORDER
     Dosage: 2 PER DAY  TWICE DAILY TAKEN BY MOUTH
     Route: 048

REACTIONS (10)
  - Violence-related symptom [None]
  - Confusional state [None]
  - Hyperaesthesia [None]
  - Depression [None]
  - Vomiting [None]
  - Rash [None]
  - Hyperacusis [None]
  - Weight decreased [None]
  - Feeding disorder [None]
  - Anger [None]

NARRATIVE: CASE EVENT DATE: 20141114
